FAERS Safety Report 5530303-9 (Version None)
Quarter: 2007Q4

REPORT INFORMATION
  Report Type: 
  Country: None (occurrence: None)
  Receive Date: 20071127
  Receipt Date: 20071127
  Transmission Date: 20080405
  Serious: Yes (Other)
  Sender: FDA-Public Use
  Company Number: None

PATIENT

DRUGS (1)
  1. AMLODIPINE [Suspect]
     Dosage: 10MG PO
     Route: 048
     Dates: start: 20071122

REACTIONS (1)
  - ANGIOEDEMA [None]
